FAERS Safety Report 21453203 (Version 5)
Quarter: 2023Q2

REPORT INFORMATION
  Report Type: Spontaneous
  Country: US (occurrence: US)
  Receive Date: 20221013
  Receipt Date: 20230627
  Transmission Date: 20230721
  Serious: Yes (Other)
  Sender: FDA-Public Use
  Company Number: US-BRISTOL-MYERS SQUIBB COMPANY-2022-119562

PATIENT
  Age: 69 Year
  Sex: Female

DRUGS (3)
  1. SPRYCEL [Suspect]
     Active Substance: DASATINIB
     Indication: Chronic myeloid leukaemia
     Route: 048
     Dates: start: 20220120
  2. SPRYCEL [Suspect]
     Active Substance: DASATINIB
     Route: 048
     Dates: start: 20220119
  3. SPRYCEL [Suspect]
     Active Substance: DASATINIB
     Route: 048
     Dates: start: 202302

REACTIONS (10)
  - Weight increased [Unknown]
  - Pulmonary oedema [Unknown]
  - Ear disorder [Unknown]
  - Pleural effusion [Unknown]
  - Deafness [Unknown]
  - Anxiety [Unknown]
  - Muscle spasms [Unknown]
  - Insomnia [Unknown]
  - Depression [Unknown]
  - Urinary tract infection [Unknown]
